FAERS Safety Report 9390985 (Version 2)
Quarter: 2013Q3

REPORT INFORMATION
  Report Type: Spontaneous
  Country: JP (occurrence: JP)
  Receive Date: 20130709
  Receipt Date: 20130801
  Transmission Date: 20140515
  Serious: No
  Sender: FDA-Public Use
  Company Number: JP-JNJFOC-20130620035

PATIENT
  Age: 84 Year
  Sex: Male
  Weight: 41.9 kg

DRUGS (10)
  1. DUROTEP MT [Suspect]
     Indication: CANCER PAIN
     Dosage: HALF PATCH
     Route: 062
     Dates: start: 201306
  2. DUROTEP MT [Suspect]
     Indication: CANCER PAIN
     Route: 062
     Dates: start: 201306
  3. DUROTEP MT [Suspect]
     Indication: CANCER PAIN
     Dosage: 2 PATCHES OF 12.5 UG/HR
     Route: 062
     Dates: start: 20130626
  4. DUROTEP MT [Suspect]
     Indication: CANCER PAIN
     Dosage: 1.5 PATCHES
     Route: 062
     Dates: start: 201306, end: 20130626
  5. ZOLPIDEM TARTRATE [Suspect]
     Indication: PRODUCT USED FOR UNKNOWN INDICATION
     Route: 048
     Dates: start: 201306, end: 20130627
  6. LANSOPRAZOLE [Concomitant]
     Indication: PRODUCT USED FOR UNKNOWN INDICATION
     Route: 048
  7. RINDERON [Concomitant]
     Indication: PRODUCT USED FOR UNKNOWN INDICATION
     Route: 048
  8. NAUZELIN [Concomitant]
     Indication: PRODUCT USED FOR UNKNOWN INDICATION
     Dosage: ( EVERY TIME AT MEAL )
     Route: 048
  9. MAGLAX [Concomitant]
     Indication: PRODUCT USED FOR UNKNOWN INDICATION
     Route: 048
  10. HYPEN [Concomitant]
     Indication: PRODUCT USED FOR UNKNOWN INDICATION
     Route: 048

REACTIONS (2)
  - Wrong technique in drug usage process [Unknown]
  - Tremor [Unknown]
